FAERS Safety Report 18159884 (Version 3)
Quarter: 2020Q3

REPORT INFORMATION
  Report Type: Spontaneous
  Country: US (occurrence: US)
  Receive Date: 20200818
  Receipt Date: 20200818
  Transmission Date: 20201103
  Serious: No
  Sender: FDA-Public Use
  Company Number: US-UNICHEM PHARMACEUTICALS (USA) INC-UCM202001-000099

PATIENT
  Age: 74 Year
  Sex: Female
  Weight: 86.18 kg

DRUGS (4)
  1. BISOPROLOL FUMARATE+HYDROCHLOROTHIAZIDE [Suspect]
     Active Substance: BISOPROLOL FUMARATE\HYDROCHLOROTHIAZIDE
     Indication: HYPERTENSION
     Dosage: 2.5MG/6.25
     Route: 048
     Dates: start: 20191120
  2. SYNTHROID [Concomitant]
     Active Substance: LEVOTHYROXINE SODIUM
     Indication: THYROID DISORDER
     Dosage: TAKING THIS MEDICATION FROM 40 YEARS.
  3. BISOPROLOL FUMARATE+HYDROCHLOROTHIAZIDE [Suspect]
     Active Substance: BISOPROLOL FUMARATE\HYDROCHLOROTHIAZIDE
     Dosage: 2.5MG/6.25
     Route: 048
  4. BISOPROLOL FUMARATE. [Concomitant]
     Active Substance: BISOPROLOL FUMARATE
     Indication: HYPERTENSION
     Dates: start: 20191207

REACTIONS (5)
  - Gait disturbance [Recovering/Resolving]
  - Muscle spasms [Recovering/Resolving]
  - Tinnitus [Recovered/Resolved]
  - Ear discomfort [Recovered/Resolved]
  - Hypoacusis [Recovered/Resolved]
